FAERS Safety Report 16781216 (Version 3)
Quarter: 2021Q3

REPORT INFORMATION
  Report Type: Spontaneous
  Country: GB (occurrence: GB)
  Receive Date: 20190906
  Receipt Date: 20210813
  Transmission Date: 20211014
  Serious: Yes (Death, Other)
  Sender: FDA-Public Use
  Company Number: PHHY2019GB205013

PATIENT
  Sex: Male

DRUGS (1)
  1. KYMRIAH [Suspect]
     Active Substance: TISAGENLECLEUCEL
     Indication: PRODUCT USED FOR UNKNOWN INDICATION
     Dosage: UNK
     Route: 065

REACTIONS (9)
  - Arthropod bite [Unknown]
  - Sepsis [Unknown]
  - Death [Fatal]
  - Inflammation [Unknown]
  - Nasopharyngitis [Unknown]
  - Insomnia [Unknown]
  - Hyperhidrosis [Unknown]
  - Body temperature increased [Recovered/Resolved]
  - Nervous system disorder [Unknown]
